FAERS Safety Report 4516642-9 (Version None)
Quarter: 2004Q4

REPORT INFORMATION
  Report Type: 
  Country: None (occurrence: None)
  Receive Date: 20041029
  Receipt Date: 20040722
  Transmission Date: 20050328
  Serious: No
  Sender: FDA-Public Use
  Company Number: 2004-118721-NL

PATIENT
  Age: 30 Year
  Sex: Female
  Weight: 88 kg

DRUGS (5)
  1. NUVARING [Suspect]
     Indication: CONTRACEPTION
     Dosage: DF DAILY VAGINAL
     Route: 067
     Dates: start: 20030901
  2. NORCO [Concomitant]
  3. XENOFLEX [Concomitant]
  4. NAPROXEN [Concomitant]
  5. LUBRICANT (RITE AID BRAND) [Concomitant]

REACTIONS (1)
  - VAGINAL CONTRACEPTIVE DEVICE EXPELLED [None]
